FAERS Safety Report 11279440 (Version 1)
Quarter: 2015Q3

REPORT INFORMATION
  Report Type: Spontaneous
  Country: US (occurrence: None)
  Receive Date: 20150715
  Receipt Date: 20150715
  Transmission Date: 20151125
  Serious: Yes (Hospitalization, Other)
  Sender: FDA-Public Use
  Company Number: 2015HINLIT0570

PATIENT
  Age: 45 Year
  Sex: Female

DRUGS (3)
  1. HYDROCODONE [Concomitant]
     Active Substance: HYDROCODONE
  2. APRAZOLAM [Concomitant]
  3. LITHIUM. [Suspect]
     Active Substance: LITHIUM
     Indication: BIPOLAR DISORDER

REACTIONS (12)
  - Toxicity to various agents [None]
  - Hallucination [None]
  - Electrocardiogram T wave abnormal [None]
  - Electrocardiogram QT prolonged [None]
  - Acute kidney injury [None]
  - Mental status changes [None]
  - Unresponsive to stimuli [None]
  - Generalised tonic-clonic seizure [None]
  - Vomiting [None]
  - Alcohol withdrawal syndrome [None]
  - Confusional state [None]
  - Supraventricular extrasystoles [None]
